FAERS Safety Report 4546380-8 (Version None)
Quarter: 2005Q1

REPORT INFORMATION
  Report Type: 
  Country: None (occurrence: None)
  Receive Date: 20050103
  Receipt Date: 20041220
  Transmission Date: 20050727
  Serious: Yes (Congenital Anomaly)
  Sender: FDA-Public Use
  Company Number: 2004117075

PATIENT
  Sex: Female

DRUGS (2)
  1. SULFASALAZINE [Suspect]
     Indication: ILL-DEFINED DISORDER
  2. AZATHIOPRINE [Suspect]
     Indication: ILL-DEFINED DISORDER

REACTIONS (6)
  - CONGENITAL ANOMALY [None]
  - DEVELOPMENTAL DELAY [None]
  - DIARRHOEA [None]
  - GROWTH RETARDATION [None]
  - HYPOTONIA [None]
  - TRANSMISSION OF DRUG VIA SEMEN [None]
